FAERS Safety Report 22191907 (Version 2)
Quarter: 2023Q2

REPORT INFORMATION
  Report Type: Spontaneous
  Country: US (occurrence: US)
  Receive Date: 20230410
  Receipt Date: 20230424
  Transmission Date: 20230721
  Serious: No
  Sender: FDA-Public Use
  Company Number: US-INTRA-CELLULAR THERAPIES, INC.-2023ICT00460

PATIENT
  Age: 32 Year
  Sex: Female
  Weight: 48.073 kg

DRUGS (2)
  1. CAPLYTA [Suspect]
     Active Substance: LUMATEPERONE
     Indication: Schizophrenia
     Dosage: 42 MG, 1X/DAY IN THE MORNING
     Route: 048
     Dates: start: 202206
  2. VITAMIN D NOS [Suspect]
     Active Substance: VITAMIN D NOS
     Dosage: UNK, 1X/WEEK
     Dates: start: 20220914, end: 20221026

REACTIONS (4)
  - Insomnia [Recovering/Resolving]
  - Somnolence [Recovering/Resolving]
  - Sedation [Recovering/Resolving]
  - Fatigue [Recovering/Resolving]

NARRATIVE: CASE EVENT DATE: 20220901
